FAERS Safety Report 6642329-2 (Version None)
Quarter: 2010Q1

REPORT INFORMATION
  Report Type: 
  Country: None (occurrence: None)
  Receive Date: 20100319
  Receipt Date: 20100315
  Transmission Date: 20100710
  Serious: No
  Sender: FDA-Public Use
  Company Number: JP-BAYER-200913390BYL

PATIENT
  Age: 76 Year
  Sex: Male
  Weight: 54 kg

DRUGS (8)
  1. NEXAVAR [Suspect]
     Indication: RENAL CELL CARCINOMA
     Dosage: TOTAL DAILY DOSE: 800 MG  UNIT DOSE: 200 MG
     Route: 048
     Dates: start: 20090709, end: 20090724
  2. NEXAVAR [Suspect]
     Dosage: UNIT DOSE: 200 MG
     Route: 048
     Dates: start: 20090821, end: 20090828
  3. TAKEPRON [Concomitant]
     Indication: OESOPHAGITIS
     Route: 048
     Dates: start: 20080801
  4. URSO 250 [Concomitant]
     Indication: HEPATITIS
     Route: 048
     Dates: start: 20080801
  5. PANCREATIN [Concomitant]
     Indication: GASTRIC OPERATION
     Route: 048
     Dates: start: 20080801
  6. EXCELASE [Concomitant]
     Indication: GASTRIC OPERATION
     Route: 048
     Dates: start: 20080801
  7. RIKKUNSHI-TO [Concomitant]
     Indication: GASTRIC OPERATION
     Route: 048
     Dates: start: 20080801
  8. GLUFAST [Concomitant]
     Indication: DIABETES MELLITUS
     Route: 048
     Dates: start: 20090724, end: 20091126

REACTIONS (3)
  - DYSGEUSIA [None]
  - HYPOPHOSPHATAEMIA [None]
  - PALMAR-PLANTAR ERYTHRODYSAESTHESIA SYNDROME [None]
